FAERS Safety Report 5153942-6 (Version None)
Quarter: 2006Q4

REPORT INFORMATION
  Report Type: 
  Country: None (occurrence: None)
  Receive Date: 20061120
  Receipt Date: 20060927
  Transmission Date: 20070319
  Serious: Yes (Death)
  Sender: FDA-Public Use
  Company Number: GB-ROCHE-464936

PATIENT
  Age: 62 Year
  Sex: Female

DRUGS (5)
  1. PEGASYS [Suspect]
     Route: 042
     Dates: start: 20051216
  2. RIBAVIRIN [Suspect]
     Route: 048
     Dates: start: 20051216
  3. THIAMINE [Concomitant]
  4. SPIRONOLACTONE [Concomitant]
  5. FUROSEMIDE [Concomitant]

REACTIONS (3)
  - HEPATIC CIRRHOSIS [None]
  - LIVER FUNCTION TEST ABNORMAL [None]
  - OEDEMA [None]
